FAERS Safety Report 25680217 (Version 1)
Quarter: 2025Q3

REPORT INFORMATION
  Report Type: Report from Study
  Country: US (occurrence: US)
  Receive Date: 20250814
  Receipt Date: 20250814
  Transmission Date: 20251021
  Serious: No
  Sender: SUNOVION
  Company Number: US-SUMITOMO PHARMA SWITZERLAND GMBH-2025SPA001032

PATIENT
  Age: 70 Year
  Sex: Male

DRUGS (21)
  1. ORGOVYX [Suspect]
     Active Substance: RELUGOLIX
     Indication: Prostate cancer
     Dosage: 360 MG, SINGLE
     Route: 048
  2. ORGOVYX [Suspect]
     Active Substance: RELUGOLIX
     Route: 048
  3. ORGOVYX [Suspect]
     Active Substance: RELUGOLIX
     Dosage: 120 MG, QD
     Route: 048
     Dates: start: 202501
  4. ALBUTEROL SULFATE [Concomitant]
     Active Substance: ALBUTEROL SULFATE
  5. ALFUZOSIN [Concomitant]
     Active Substance: ALFUZOSIN
  6. BACLOFEN [Concomitant]
     Active Substance: BACLOFEN
  7. BREZTRI [Concomitant]
     Active Substance: BUDESONIDE\FORMOTEROL\GLYCOPYRROLATE
  8. ELIQUIS [Concomitant]
     Active Substance: APIXABAN
  9. LACTULOSE [Concomitant]
     Active Substance: LACTULOSE
  10. LORAZEPAM [Concomitant]
     Active Substance: LORAZEPAM
  11. METOPROLOL TARTRATE [Concomitant]
     Active Substance: METOPROLOL TARTRATE
  12. ZOFRAN [Concomitant]
     Active Substance: ONDANSETRON HYDROCHLORIDE
  13. OXYCODONE [Concomitant]
     Active Substance: OXYCODONE
  14. PREDNISONE [Concomitant]
     Active Substance: PREDNISONE
  15. PROMETHAZINE [Concomitant]
     Active Substance: PROMETHAZINE HYDROCHLORIDE
  16. KETOCONAZOLE [Concomitant]
     Active Substance: KETOCONAZOLE
  17. OFLOXACIN [Concomitant]
     Active Substance: OFLOXACIN
  18. FLUOROMETHOLONE [Concomitant]
     Active Substance: FLUOROMETHOLONE
  19. SILVER NITRATE [Concomitant]
     Active Substance: SILVER NITRATE
  20. ONDANSETRON [Concomitant]
     Active Substance: ONDANSETRON
  21. TRIAMCINOLONE [Concomitant]
     Active Substance: TRIAMCINOLONE

REACTIONS (8)
  - Feeling of body temperature change [Not Recovered/Not Resolved]
  - Tracheal pain [Not Recovered/Not Resolved]
  - Testicular pain [Recovering/Resolving]
  - Drug intolerance [Unknown]
  - Fatigue [Recovering/Resolving]
  - Hot flush [Not Recovered/Not Resolved]
  - Hyperhidrosis [Not Recovered/Not Resolved]
  - Product dose omission issue [Unknown]
